FAERS Safety Report 5801337-1 (Version None)
Quarter: 2008Q3

REPORT INFORMATION
  Report Type: 
  Country: None (occurrence: None)
  Receive Date: 20080703
  Receipt Date: 20080703
  Transmission Date: 20090109
  Serious: Yes (Other)
  Sender: FDA-Public Use
  Company Number: None

PATIENT
  Sex: Male
  Weight: 89.8122 kg

DRUGS (2)
  1. BUPROPION XL 300MG [Suspect]
     Indication: DEPRESSION
     Dosage: XL 300MG ONE D ORAL
     Route: 048
     Dates: start: 20060612, end: 20061006
  2. BUPROPION SR 150MG [Suspect]
     Indication: DEPRESSION
     Dosage: SR 150MG BID ORAL
     Route: 048
     Dates: start: 20061006, end: 20061228

REACTIONS (3)
  - DISTURBANCE IN ATTENTION [None]
  - SEXUAL DYSFUNCTION [None]
  - TENSION [None]
